FAERS Safety Report 17810461 (Version 1)
Quarter: 2020Q2

REPORT INFORMATION
  Report Type: Spontaneous
  Country: CA (occurrence: CA)
  Receive Date: 20200521
  Receipt Date: 20200521
  Transmission Date: 20200714
  Serious: Yes (Hospitalization)
  Sender: FDA-Public Use
  Company Number: CA-TEVA-2020-CA-1237083

PATIENT
  Age: 39 Year
  Sex: Male
  Weight: 74.46 kg

DRUGS (2)
  1. OLANZAPINE. [Suspect]
     Active Substance: OLANZAPINE
     Indication: SCHIZOPHRENIA
     Dosage: 25 MILLIGRAM DAILY;
     Route: 048
  2. ZOPICLONE [Concomitant]
     Active Substance: ZOPICLONE

REACTIONS (3)
  - Psychotic disorder [Unknown]
  - Insomnia [Unknown]
  - Psychiatric decompensation [Unknown]
